FAERS Safety Report 14665726 (Version 4)
Quarter: 2018Q3

REPORT INFORMATION
  Report Type: Report from Study
  Country: US (occurrence: US)
  Receive Date: 20180321
  Receipt Date: 20180914
  Transmission Date: 20181010
  Serious: Yes (Hospitalization, Disabling)
  Sender: FDA-Public Use
  Company Number: US-ASTRAZENECA-2018SE33434

PATIENT
  Age: 75 Year
  Sex: Female
  Weight: 51.1 kg

DRUGS (47)
  1. ACALABRUTINIB. [Suspect]
     Active Substance: ACALABRUTINIB
     Indication: MANTLE CELL LYMPHOMA
     Route: 048
     Dates: start: 20160101, end: 20160106
  2. TRAMADOL. [Concomitant]
     Active Substance: TRAMADOL
     Indication: PAIN IN EXTREMITY
     Dosage: 1.0DF AS REQUIRED
     Route: 048
     Dates: start: 20151231
  3. ONDANSETRON [Concomitant]
     Active Substance: ONDANSETRON
     Indication: VOMITING
     Route: 048
     Dates: start: 20170913
  4. VICKS DAYQUIL [Concomitant]
     Active Substance: DEXTROMETHORPHAN HYDROBROMIDE\GUAIFENESIN
     Indication: COUGH
     Dosage: 2.0DF AS REQUIRED
     Route: 048
     Dates: start: 20151213
  5. ACALABRUTINIB. [Suspect]
     Active Substance: ACALABRUTINIB
     Indication: MANTLE CELL LYMPHOMA
     Route: 048
     Dates: start: 20160108, end: 20160203
  6. ACALABRUTINIB. [Suspect]
     Active Substance: ACALABRUTINIB
     Indication: MANTLE CELL LYMPHOMA
     Route: 048
     Dates: start: 20180310, end: 20180310
  7. METFORMIN [Concomitant]
     Active Substance: METFORMIN HYDROCHLORIDE
     Indication: HYPERGLYCAEMIA
     Route: 048
     Dates: start: 20170304
  8. FARXIGA [Concomitant]
     Active Substance: DAPAGLIFLOZIN PROPANEDIOL
     Indication: DIABETES MELLITUS
     Route: 048
     Dates: start: 20150506
  9. LEVAQUIN [Concomitant]
     Active Substance: LEVOFLOXACIN
     Indication: INFECTION
     Route: 048
     Dates: start: 20180205
  10. ONGLYZA [Concomitant]
     Active Substance: SAXAGLIPTIN HYDROCHLORIDE
     Indication: DIABETES MELLITUS
     Route: 048
     Dates: start: 20150515
  11. ZOLPIDEM TARTRATE. [Concomitant]
     Active Substance: ZOLPIDEM TARTRATE
     Indication: INSOMNIA
     Route: 048
     Dates: start: 20140515
  12. MORPHINE [Concomitant]
     Active Substance: MORPHINE
     Indication: PAIN
     Route: 042
     Dates: start: 20170109
  13. ACALABRUTINIB. [Suspect]
     Active Substance: ACALABRUTINIB
     Indication: MANTLE CELL LYMPHOMA
     Route: 048
     Dates: start: 20151223, end: 20151223
  14. TRAMADOL. [Concomitant]
     Active Substance: TRAMADOL
     Indication: HEADACHE
     Dosage: 50.0MG AS REQUIRED
     Route: 048
     Dates: start: 20170802
  15. LEVOTHYROXINE. [Concomitant]
     Active Substance: LEVOTHYROXINE
     Indication: HYPOTHYROIDISM
     Route: 048
     Dates: start: 20171002
  16. TRAZODONE [Concomitant]
     Active Substance: TRAZODONE HYDROCHLORIDE
     Indication: INSOMNIA
     Dosage: 100 MG OTHER NIGHTLY PRN
     Route: 048
  17. ACALABRUTINIB. [Suspect]
     Active Substance: ACALABRUTINIB
     Indication: MANTLE CELL LYMPHOMA
     Route: 048
     Dates: start: 20180206, end: 20180309
  18. ALPRAZOLAM. [Concomitant]
     Active Substance: ALPRAZOLAM
     Indication: ANXIETY
     Route: 048
     Dates: start: 20140529
  19. RISPERIDONE. [Concomitant]
     Active Substance: RISPERIDONE
     Indication: AGITATION
     Route: 048
     Dates: start: 20140515
  20. HYDROCODONE [Concomitant]
     Active Substance: HYDROCODONE
     Indication: PAIN
     Dosage: 300.0MG AS REQUIRED
     Route: 048
     Dates: start: 20151211
  21. ONDANSETRON [Concomitant]
     Active Substance: ONDANSETRON
     Indication: VOMITING
     Dosage: 8.0MG EVERY 8 ? 12 HOURS
     Route: 048
     Dates: start: 20170809
  22. CEFEPIME [Concomitant]
     Active Substance: CEFEPIME HYDROCHLORIDE
     Indication: PYREXIA
     Route: 042
     Dates: start: 20170913
  23. ACALABRUTINIB. [Suspect]
     Active Substance: ACALABRUTINIB
     Indication: MANTLE CELL LYMPHOMA
     Route: 048
     Dates: start: 20151210, end: 20151210
  24. ACALABRUTINIB. [Suspect]
     Active Substance: ACALABRUTINIB
     Indication: MANTLE CELL LYMPHOMA
     Route: 048
     Dates: start: 20160107, end: 20160107
  25. DULOXETINE. [Concomitant]
     Active Substance: DULOXETINE
     Indication: DEPRESSION
     Route: 048
     Dates: start: 20140529
  26. FOLIC ACID. [Concomitant]
     Active Substance: FOLIC ACID
     Indication: SUPPLEMENTATION THERAPY
     Route: 048
     Dates: start: 20070718
  27. ONDANSETRON [Concomitant]
     Active Substance: ONDANSETRON
     Indication: VOMITING
     Route: 048
     Dates: start: 20170913
  28. ONDANSETRON [Concomitant]
     Active Substance: ONDANSETRON
     Indication: VOMITING
     Dosage: 8.0MG EVERY 8 ? 12 HOURS
     Route: 048
     Dates: start: 20170809
  29. GABAPENTIN. [Concomitant]
     Active Substance: GABAPENTIN
     Indication: NEUROPATHY PERIPHERAL
     Route: 048
     Dates: start: 20170718
  30. COLACE [Concomitant]
     Active Substance: DOCUSATE SODIUM
     Indication: CONSTIPATION PROPHYLAXIS
     Route: 048
     Dates: start: 20170109
  31. ACALABRUTINIB. [Suspect]
     Active Substance: ACALABRUTINIB
     Indication: MANTLE CELL LYMPHOMA
     Route: 048
     Dates: start: 20151217, end: 20151217
  32. ACALABRUTINIB. [Suspect]
     Active Substance: ACALABRUTINIB
     Indication: MANTLE CELL LYMPHOMA
     Route: 048
     Dates: start: 20151231, end: 20151231
  33. ACALABRUTINIB. [Suspect]
     Active Substance: ACALABRUTINIB
     Indication: MANTLE CELL LYMPHOMA
     Route: 048
     Dates: start: 20180104, end: 20180131
  34. HALOPERIDOL. [Concomitant]
     Active Substance: HALOPERIDOL
     Indication: AGITATION
     Dosage: 1.0MG AS REQUIRED
     Route: 048
     Dates: start: 20170802
  35. TRAMADOL. [Concomitant]
     Active Substance: TRAMADOL
     Indication: PAIN IN EXTREMITY
     Dosage: 50.0MG AS REQUIRED
     Route: 048
     Dates: start: 20170802
  36. SENNA?DOCUSATE (SENOKOT?S) [Concomitant]
     Indication: CONSTIPATION PROPHYLAXIS
     Dosage: 8.6 ? 50 MG TWICE PER DAY
     Route: 048
     Dates: start: 20170107
  37. VICKS NYQUIL [Concomitant]
     Active Substance: ACETAMINOPHEN\DEXTROMETHORPHAN HYDROBROMIDE\DOXYLAMINE SUCCINATE
     Indication: COUGH
     Dosage: 325.0MG AS REQUIRED
     Route: 048
     Dates: start: 20151213
  38. ACALABRUTINIB. [Suspect]
     Active Substance: ACALABRUTINIB
     Indication: MANTLE CELL LYMPHOMA
     Route: 048
     Dates: start: 20151211, end: 20151216
  39. ACALABRUTINIB. [Suspect]
     Active Substance: ACALABRUTINIB
     Indication: MANTLE CELL LYMPHOMA
     Route: 048
     Dates: start: 20151218, end: 20151222
  40. ACALABRUTINIB. [Suspect]
     Active Substance: ACALABRUTINIB
     Indication: MANTLE CELL LYMPHOMA
     Route: 048
     Dates: start: 20151224, end: 20151230
  41. ACALABRUTINIB. [Suspect]
     Active Substance: ACALABRUTINIB
     Indication: MANTLE CELL LYMPHOMA
     Route: 048
     Dates: start: 20171106, end: 20180103
  42. LEVEMIR [Concomitant]
     Active Substance: INSULIN DETEMIR
     Indication: DIABETES MELLITUS
     Route: 058
     Dates: start: 20140529
  43. FLAGYL [Concomitant]
     Active Substance: METRONIDAZOLE\METRONIDAZOLE HYDROCHLORIDE
     Indication: DIARRHOEA
     Route: 048
     Dates: start: 20170302
  44. AMOXICILLIN (AUGMENTIN) [Concomitant]
     Indication: URINARY TRACT INFECTION
     Route: 048
     Dates: start: 20161206
  45. ACALABRUTINIB. [Suspect]
     Active Substance: ACALABRUTINIB
     Indication: MANTLE CELL LYMPHOMA
     Route: 048
     Dates: start: 20171013, end: 20171013
  46. TRAMADOL. [Concomitant]
     Active Substance: TRAMADOL
     Indication: HEADACHE
     Dosage: 1.0DF AS REQUIRED
     Route: 048
     Dates: start: 20151231
  47. NYSTATIN (MYCOSTATIN) [Concomitant]
     Indication: INTERTRIGO
     Dosage: 100,000 UNITS/G POWDER THREE TIMES PER DAY
     Route: 061
     Dates: start: 20170302

REACTIONS (3)
  - Urinary tract infection bacterial [Recovered/Resolved]
  - Autoimmune encephalopathy [Recovered/Resolved]
  - Pseudomonal bacteraemia [Recovered/Resolved]

NARRATIVE: CASE EVENT DATE: 20180107
